FAERS Safety Report 5307010-0 (Version None)
Quarter: 2007Q2

REPORT INFORMATION
  Report Type: 
  Country: None (occurrence: None)
  Receive Date: 20070419
  Receipt Date: 20070406
  Transmission Date: 20071010
  Serious: Yes (Hospitalization)
  Sender: FDA-Public Use
  Company Number: MC200700298

PATIENT
  Age: 75 Year
  Sex: Female

DRUGS (11)
  1. ANGIOMAX [Suspect]
     Indication: PERCUTANEOUS CORONARY INTERVENTION
     Dosage: 0.75 MG/KG, BOLUS, IV BOLUS, 1.75 MG/KG, HR, INTRAVENOUS
     Route: 040
     Dates: start: 20070405, end: 20070405
  2. ANGIOMAX [Suspect]
     Indication: PERCUTANEOUS CORONARY INTERVENTION
     Dosage: 0.75 MG/KG, BOLUS, IV BOLUS, 1.75 MG/KG, HR, INTRAVENOUS
     Route: 040
     Dates: start: 20070405, end: 20070405
  3. METFORMIN HCL [Concomitant]
  4. GLYBURIDE [Concomitant]
  5. ZETIA [Concomitant]
  6. LIPITOR [Concomitant]
  7. ATENOLOL [Concomitant]
  8. VERSED [Concomitant]
  9. HEPARIN [Concomitant]
  10. LOVENOX /00889602/ (HEPARIN-FRACTION, SODIUM SALT) [Concomitant]
  11. LASIX [Concomitant]

REACTIONS (5)
  - HAEMATOCRIT DECREASED [None]
  - HAEMATOMA [None]
  - HAEMOGLOBIN DECREASED [None]
  - HYPOTENSION [None]
  - VASCULAR PSEUDOANEURYSM [None]
